FAERS Safety Report 14692941 (Version 1)
Quarter: 2018Q1

REPORT INFORMATION
  Report Type: Report from Study
  Country: US (occurrence: US)
  Receive Date: 20180329
  Receipt Date: 20180329
  Transmission Date: 20180509
  Serious: Yes (Other)
  Sender: FDA-Public Use
  Company Number: US-ROCHE-2091818

PATIENT
  Sex: Male
  Weight: 110.55 kg

DRUGS (6)
  1. FLOVENT HFA [Concomitant]
     Active Substance: FLUTICASONE PROPIONATE
     Dosage: 2 PUFFS.  10.6 G, 5 REFILLS.
     Route: 055
  2. MIRALAX [Concomitant]
     Active Substance: POLYETHYLENE GLYCOL 3350
  3. ALBUTEROL. [Concomitant]
     Active Substance: ALBUTEROL
     Indication: WHEEZING
     Dosage: 15 MINUTES BEFORE EXERISE, 2 PUFFS PRN.  8 GM, 1 REFILL.
     Route: 055
  4. VITAMIN D3 [Concomitant]
     Active Substance: CHOLECALCIFEROL
     Dosage: FOR 30 DAYS, 30 CAPSULE, 3 REFILLS.
     Route: 048
  5. NUTROPIN AQ [Suspect]
     Active Substance: SOMATROPIN
     Indication: HYPOPITUITARISM
     Dosage: 30 EA
     Route: 058
  6. NUTROPIN AQ [Suspect]
     Active Substance: SOMATROPIN
     Indication: GROWTH HORMONE DEFICIENCY
     Route: 058

REACTIONS (10)
  - Abdominal pain [Unknown]
  - Sleep apnoea syndrome [Unknown]
  - Chest pain [Unknown]
  - Acanthosis nigricans [Unknown]
  - Dyspnoea exertional [Unknown]
  - Asthma [Unknown]
  - Back pain [Unknown]
  - Vitamin D deficiency [Unknown]
  - Obesity [Unknown]
  - Gynaecomastia [Unknown]
